FAERS Safety Report 24336305 (Version 1)
Quarter: 2024Q3

REPORT INFORMATION
  Report Type: Spontaneous
  Country: NO (occurrence: NO)
  Receive Date: 20240919
  Receipt Date: 20240919
  Transmission Date: 20241017
  Serious: No
  Sender: ROCHE
  Company Number: None

PATIENT
  Age: 48 Year
  Sex: Male

DRUGS (2)
  1. TAMIFLU [Suspect]
     Active Substance: OSELTAMIVIR PHOSPHATE
     Indication: Influenza
     Dosage: IN THE MORNING AND IN THE EVENING
     Route: 065
     Dates: start: 202312, end: 20231229
  2. PARACET (NORWAY) [Concomitant]
     Indication: Product used for unknown indication
     Dates: start: 202312, end: 202312

REACTIONS (15)
  - Irritability [Recovered/Resolved with Sequelae]
  - Confusional state [Recovered/Resolved with Sequelae]
  - Mental fatigue [Unknown]
  - Thinking abnormal [Unknown]
  - Muscle discomfort [Unknown]
  - Restlessness [Recovered/Resolved with Sequelae]
  - Panic reaction [Unknown]
  - Frustration tolerance decreased [Recovered/Resolved with Sequelae]
  - Anger [Recovered/Resolved with Sequelae]
  - Pain [Recovered/Resolved with Sequelae]
  - Memory impairment [Unknown]
  - Depression [Recovered/Resolved with Sequelae]
  - Electric shock sensation [Unknown]
  - Migraine [Recovered/Resolved with Sequelae]
  - Anxiety [Unknown]

NARRATIVE: CASE EVENT DATE: 20231201
